FAERS Safety Report 22125388 (Version 2)
Quarter: 2023Q2

REPORT INFORMATION
  Report Type: Spontaneous
  Country: None (occurrence: JP)
  Receive Date: 20230322
  Receipt Date: 20230411
  Transmission Date: 20230721
  Serious: Yes (Other)
  Sender: FDA-Public Use
  Company Number: JP-Ascend Therapeutics US, LLC-2139360

PATIENT
  Age: 59 Year
  Sex: Female

DRUGS (3)
  1. ESTROGEL [Suspect]
     Active Substance: ESTRADIOL
     Indication: Product used for unknown indication
     Route: 062
  2. ESTROGEL [Suspect]
     Active Substance: ESTRADIOL
  3. ESTROGEL [Suspect]
     Active Substance: ESTRADIOL
     Route: 062

REACTIONS (1)
  - Dermatomyositis [Recovered/Resolved]

NARRATIVE: CASE EVENT DATE: 20230308
